FAERS Safety Report 11013154 (Version 2)
Quarter: 2015Q2

REPORT INFORMATION
  Report Type: Spontaneous
  Country: US (occurrence: US)
  Receive Date: 20150411
  Receipt Date: 20150525
  Transmission Date: 20150821
  Serious: No
  Sender: FDA-Public Use
  Company Number: US-JNJFOC-20131209554

PATIENT
  Age: 40 Year
  Sex: Female
  Weight: 92.53 kg

DRUGS (5)
  1. CYMBALTA [Concomitant]
     Active Substance: DULOXETINE HYDROCHLORIDE
     Indication: PSORIATIC ARTHROPATHY
     Route: 048
  2. AMITRIPTYLINE [Concomitant]
     Active Substance: AMITRIPTYLINE
     Indication: PSORIATIC ARTHROPATHY
     Route: 048
  3. REMICADE [Suspect]
     Active Substance: INFLIXIMAB
     Indication: PSORIATIC ARTHROPATHY
     Route: 042
     Dates: start: 20131101
  4. HYDROCODONE [Concomitant]
     Active Substance: HYDROCODONE
     Indication: PSORIATIC ARTHROPATHY
     Dosage: 10-325 MG
     Route: 048
  5. FOLIC ACID. [Concomitant]
     Active Substance: FOLIC ACID
     Indication: PSORIATIC ARTHROPATHY
     Route: 065

REACTIONS (3)
  - Headache [Not Recovered/Not Resolved]
  - Irritability [Not Recovered/Not Resolved]
  - Feeling abnormal [Not Recovered/Not Resolved]

NARRATIVE: CASE EVENT DATE: 20131101
